FAERS Safety Report 25103144 (Version 3)
Quarter: 2025Q4

REPORT INFORMATION
  Report Type: Report from Study
  Country: EU (occurrence: EU)
  Receive Date: 20250321
  Receipt Date: 20251210
  Transmission Date: 20260118
  Serious: Yes (Other)
  Sender: AUROBINDO
  Company Number: EU-ROCHE-2714964

PATIENT
  Age: 11 Year
  Sex: Male
  Weight: 44 kg

DRUGS (10)
  1. PREDNISONE [Suspect]
     Active Substance: PREDNISONE
     Indication: Nephrotic syndrome
     Dosage: UNK UNK, EVERY OTHER DAY
  2. PREDNISONE [Suspect]
     Active Substance: PREDNISONE
     Dosage: 20 MILLIGRAM, ONCE A DAY, AFTER DARATUMUMAB INFUSION
     Route: 065
  3. PREDNISONE [Suspect]
     Active Substance: PREDNISONE
     Dosage: 60 MILLIGRAM/SQ. METER, EVERY OTHER DAY
     Route: 065
  4. DARATUMUMAB [Suspect]
     Active Substance: DARATUMUMAB
     Indication: Nephrotic syndrome
     Dosage: 770 MILLIGRAM (AT DAY 14)
     Route: 065
  5. METHYLPREDNISOLONE [Suspect]
     Active Substance: METHYLPREDNISOLONE
     Indication: Nephrotic syndrome
     Dosage: 1 MILLIGRAM/KILOGRAM
     Route: 065
  6. OBINUTUZUMAB [Suspect]
     Active Substance: OBINUTUZUMAB
     Indication: Nephrotic syndrome
     Dosage: 230 MILLIGRAM
  7. TACROLIMUS [Suspect]
     Active Substance: TACROLIMUS
     Indication: Nephrotic syndrome
     Dosage: UNK
  8. Acetaminophen7 [Concomitant]
     Indication: Product used for unknown indication
     Dosage: 15 MILLIGRAM/KILOGRAM
     Route: 065
  9. Dexchlorpheniramine7 [Concomitant]
     Indication: Product used for unknown indication
     Dosage: UNK
     Route: 065
  10. Sulfamethoxazole7 [Concomitant]
     Indication: Product used for unknown indication
     Dosage: 800 MILLIGRAM 0.33 WEEK
     Route: 065

REACTIONS (3)
  - Hypogammaglobulinaemia [Unknown]
  - Off label use [Recovered/Resolved]
  - Blood immunoglobulin G decreased [Unknown]
